FAERS Safety Report 14825430 (Version 2)
Quarter: 2018Q2

REPORT INFORMATION
  Report Type: Report from Study
  Country: CA (occurrence: CA)
  Receive Date: 20180430
  Receipt Date: 20180521
  Transmission Date: 20180711
  Serious: Yes (Other)
  Sender: FDA-Public Use
  Company Number: CA-TAKEDA-2017TUS008746

PATIENT
  Age: 61 Year
  Sex: Female

DRUGS (10)
  1. MONOCOR [Concomitant]
     Active Substance: BISOPROLOL FUMARATE
     Dosage: 2.5 MG, BID
  2. DEXILANT [Suspect]
     Active Substance: DEXLANSOPRAZOLE
     Indication: PRODUCT USED FOR UNKNOWN INDICATION
     Dosage: 60 MG, BID
     Route: 065
  3. VEDOLIZUMAB [Suspect]
     Active Substance: VEDOLIZUMAB
     Indication: CROHN^S DISEASE
     Dosage: 300 MG, UNK
     Route: 042
     Dates: start: 20170106
  4. MONOCOR [Concomitant]
     Active Substance: BISOPROLOL FUMARATE
     Dosage: 5 MG, BID
  5. TYLENOL [Concomitant]
     Active Substance: ACETAMINOPHEN
     Indication: PREMEDICATION
     Dosage: 650 MG, UNK
     Route: 048
  6. ATORVASTATIN [Concomitant]
     Active Substance: ATORVASTATIN
     Dosage: UNK
  7. DEXAMETHASONE. [Concomitant]
     Active Substance: DEXAMETHASONE
     Indication: PREMEDICATION
     Dosage: 20 MG, UNK
     Route: 042
  8. BENADRYL [Concomitant]
     Active Substance: DIPHENHYDRAMINE HYDROCHLORIDE
     Indication: PREMEDICATION
     Dosage: 50 MG, UNK
     Route: 048
  9. AVENTYL [Concomitant]
     Active Substance: NORTRIPTYLINE HYDROCHLORIDE
     Indication: MUSCLE RELAXANT THERAPY
     Dosage: 10 MG, UNK
  10. CALCIUM [Concomitant]
     Active Substance: CALCIUM
     Dosage: UNK

REACTIONS (8)
  - Dyschezia [Not Recovered/Not Resolved]
  - Cystocele [Unknown]
  - Rectocele [Unknown]
  - Acne [Not Recovered/Not Resolved]
  - Pruritus generalised [Recovered/Resolved]
  - Abdominal pain [Not Recovered/Not Resolved]
  - Hot flush [Not Recovered/Not Resolved]
  - Procedural pain [Not Recovered/Not Resolved]

NARRATIVE: CASE EVENT DATE: 201704
